FAERS Safety Report 5623856-3 (Version None)
Quarter: 2008Q1

REPORT INFORMATION
  Report Type: 
  Country: None (occurrence: None)
  Receive Date: 20080207
  Receipt Date: 20080124
  Transmission Date: 20080703
  Serious: Yes (Other)
  Sender: FDA-Public Use
  Company Number: 2008S1001278

PATIENT
  Age: 39 Year
  Sex: Female

DRUGS (3)
  1. CITALOPRAM HYDROBROMIDE [Suspect]
     Indication: DEPRESSION
     Dosage: 40 MG
     Dates: start: 20071123, end: 20071220
  2. DIAZEPAM [Concomitant]
  3. ZOPICLONE [Concomitant]

REACTIONS (1)
  - CONTUSION [None]
